FAERS Safety Report 17690818 (Version 18)
Quarter: 2023Q4

REPORT INFORMATION
  Report Type: Report from Study
  Country: CN (occurrence: None)
  Receive Date: 20200422
  Receipt Date: 20231101
  Transmission Date: 20240109
  Serious: Yes (Hospitalization)
  Sender: FDA-Public Use
  Company Number: CN-ROCHE-2583616

PATIENT
  Age: 63 Year
  Sex: Female
  Weight: 60 kg

DRUGS (24)
  1. ATEZOLIZUMAB [Suspect]
     Active Substance: ATEZOLIZUMAB
     Indication: Triple negative breast cancer
     Dosage: DATE OF LAST DOSE (840 MG) PRIOR TO ADVERSE EVENT 04/APR/2020
     Route: 041
     Dates: start: 20191012
  2. CYCLOPHOSPHAMIDE [Suspect]
     Active Substance: CYCLOPHOSPHAMIDE
     Indication: Triple negative breast cancer
     Dosage: DATE OF LAST DOSE PRIOR TO ADVERSE EVENT 04/APR/2020, 978 MG
     Route: 042
     Dates: start: 20200106
  3. CYCLOPHOSPHAMIDE [Suspect]
     Active Substance: CYCLOPHOSPHAMIDE
     Dosage: DATE OF LAST DOSE PRIOR TO ADVERSE EVENT 04/APR/2020, 978 MG
     Route: 042
     Dates: start: 20200106
  4. EPIRUBICIN [Suspect]
     Active Substance: EPIRUBICIN
     Indication: Triple negative breast cancer
     Dosage: MOST RECENT DOSE IF EPIRUBICIN: 04/APR/2020, 146.7 MG
     Route: 042
     Dates: start: 20200106
  5. EPIRUBICIN [Suspect]
     Active Substance: EPIRUBICIN
     Dosage: MOST RECENT DOSE IF EPIRUBICIN: 04/APR/2020, 146.7 MG
     Route: 042
  6. PACLITAXEL [Suspect]
     Active Substance: PACLITAXEL
     Indication: Triple negative breast cancer
     Dosage: MOST RECENT DOSE OF PACLITAXEL PRIOR TO AE ONSET: 28/DEC/2019 (130.4 MG).
     Route: 042
     Dates: start: 20191012
  7. PACLITAXEL [Suspect]
     Active Substance: PACLITAXEL
     Dosage: MOST RECENT DOSE OF PACLITAXEL PRIOR TO AE ONSET: 28/DEC/2019 (130.4 MG).
     Route: 042
  8. FILGRASTIM [Suspect]
     Active Substance: FILGRASTIM
     Indication: Triple negative breast cancer
     Dosage: START TIME 11:30, END TIME 10:44
     Route: 058
     Dates: start: 20200403, end: 20200406
  9. FILGRASTIM [Suspect]
     Active Substance: FILGRASTIM
     Dosage: START TIME 15:46?END TIME 07:00
     Route: 058
     Dates: start: 20200119, end: 20200120
  10. FILGRASTIM [Suspect]
     Active Substance: FILGRASTIM
     Dosage: START AND END TIME UNKNOWN.
     Route: 058
     Dates: start: 20200113, end: 20200113
  11. DICLOFENAC SODIUM [Concomitant]
     Active Substance: DICLOFENAC\DICLOFENAC SODIUM
     Dates: start: 20200412, end: 20200414
  12. CEPHRADINE [Concomitant]
     Active Substance: CEPHRADINE
     Dates: start: 20200411
  13. PANTOPRAZOLE SODIUM [Concomitant]
     Active Substance: PANTOPRAZOLE SODIUM
     Dates: start: 20200411, end: 20200423
  14. CILASTATIN SODIUM\IMIPENEM [Concomitant]
     Active Substance: CILASTATIN SODIUM\IMIPENEM
     Dates: start: 20200412, end: 20200423
  15. GRANULOCYTE COLONY-STIMULATING FACTOR NOS [Concomitant]
     Active Substance: GRANULOCYTE COLONY-STIMULATING FACTOR NOS
     Dates: start: 20200412, end: 20200418
  16. GRANULOCYTE COLONY-STIMULATING FACTOR NOS [Concomitant]
     Active Substance: GRANULOCYTE COLONY-STIMULATING FACTOR NOS
     Dates: start: 20200411, end: 20200411
  17. THROMBOPOIETIN [Concomitant]
     Active Substance: THROMBOPOIETIN
     Dates: start: 20200415, end: 20200422
  18. SODIUM CHLORIDE [Concomitant]
     Active Substance: SODIUM CHLORIDE
     Dates: start: 20200411, end: 20200414
  19. MONTMORILLONITE [Concomitant]
     Active Substance: MONTMORILLONITE
     Dates: start: 20200412, end: 20200412
  20. DEXAMETHASONE [Concomitant]
     Active Substance: DEXAMETHASONE
     Dates: start: 20200412, end: 20200412
  21. ERYTHROPOIETIN [Concomitant]
     Active Substance: ERYTHROPOIETIN
     Dates: start: 20200417, end: 20200423
  22. PROMETHAZINE HYDROCHLORIDE [Concomitant]
     Active Substance: PROMETHAZINE HYDROCHLORIDE
     Dates: start: 20200415, end: 20200415
  23. FUSIDIC ACID [Concomitant]
     Active Substance: FUSIDIC ACID
     Dates: start: 20200417, end: 20200417
  24. ALPRAZOLAM [Concomitant]
     Active Substance: ALPRAZOLAM
     Dates: start: 20200419

REACTIONS (2)
  - Febrile neutropenia [Recovered/Resolved]
  - Anal abscess [Recovered/Resolved with Sequelae]

NARRATIVE: CASE EVENT DATE: 20200410
